FAERS Safety Report 7773263-2 (Version None)
Quarter: 2011Q3

REPORT INFORMATION
  Report Type: 
  Country: None (occurrence: None)
  Receive Date: 20110922
  Receipt Date: 20110915
  Transmission Date: 20111222
  Serious: Yes (Death, Other)
  Sender: FDA-Public Use
  Company Number: JP-CELGENEUS-087-50794-11092597

PATIENT
  Age: 70 Year
  Sex: Male

DRUGS (1)
  1. VIDAZA [Suspect]
     Dosage: 75 MILLIGRAM/SQ. METER
     Route: 065
     Dates: start: 20110905, end: 20110909

REACTIONS (3)
  - CARDIAC FAILURE [None]
  - RENAL DISORDER [None]
  - LIVER DISORDER [None]
